FAERS Safety Report 4659369-5 (Version None)
Quarter: 2005Q2

REPORT INFORMATION
  Report Type: 
  Country: None (occurrence: None)
  Receive Date: 20050510
  Receipt Date: 20050427
  Transmission Date: 20051028
  Serious: Yes (Death)
  Sender: FDA-Public Use
  Company Number: 2005066883

PATIENT
  Age: 54 Year
  Sex: Female

DRUGS (12)
  1. ZYVOX [Suspect]
     Indication: ENDOCARDITIS BACTERIAL
     Dosage: INTRAVENOUS
     Route: 042
  2. ZYVOX [Suspect]
     Indication: ENDOCARDITIS BACTERIAL
     Dosage: 1200 MG (600 MG, 1 IN 1 D), INTRAVENOUS
     Route: 042
     Dates: start: 20050404, end: 20050422
  3. FILGRASTIM (FILGRASTIM) [Suspect]
     Indication: LEUKOPENIA
     Dosage: 300 MCG (1 IN 1 D)
     Dates: start: 20050420, end: 20050421
  4. ERYTHROPOIETIN (ERYTHROPOIETIN) [Suspect]
     Indication: ANAEMIA
     Dosage: 40000 IU/ML, SUBCUTANEOUS
     Route: 058
     Dates: start: 20050420, end: 20050420
  5. LENOGRASTIM (LENOGRASTIM) [Concomitant]
  6. ASPIRIN [Concomitant]
  7. BLOPRESS PLUS         (CANDESARTAN CILEXETIL, HYDROCHLOROTHIAZIDE) [Concomitant]
  8. LANSOPRAZOLE [Concomitant]
  9. SPIRONOLACTONE [Concomitant]
  10. ALLOPURINOL [Concomitant]
  11. FUROSEMIDE [Concomitant]
  12. METOPROLOL TARTRATE [Concomitant]

REACTIONS (5)
  - AGITATION [None]
  - HYPERVENTILATION [None]
  - LACTIC ACIDOSIS [None]
  - PSYCHOMOTOR AGITATION [None]
  - VOMITING [None]
